FAERS Safety Report 7492805-8 (Version None)
Quarter: 2011Q2

REPORT INFORMATION
  Report Type: 
  Country: None (occurrence: None)
  Receive Date: 20110512
  Receipt Date: 20110407
  Transmission Date: 20111010
  Serious: Yes (Other)
  Sender: FDA-Public Use
  Company Number: 2011SP020169

PATIENT

DRUGS (3)
  1. PACLITAXEL [Concomitant]
  2. TEMOZOLOMIDE [Suspect]
     Indication: NEOPLASM
     Dosage: 75,100,125 MG/M2, PO
     Route: 048
  3. CARBOPLATIN [Concomitant]

REACTIONS (1)
  - FEBRILE NEUTROPENIA [None]
